FAERS Safety Report 4351673-3 (Version None)
Quarter: 2004Q2

REPORT INFORMATION
  Report Type: 
  Country: None (occurrence: None)
  Receive Date: 20040429
  Receipt Date: 20040223
  Transmission Date: 20050107
  Serious: No
  Sender: FDA-Public Use
  Company Number: 2004-114241-NL

PATIENT
  Age: 33 Year
  Sex: Female
  Weight: 52.3 kg

DRUGS (2)
  1. NUVARING [Suspect]
     Indication: CONTRACEPTION
     Dosage: DF DAILY
     Dates: start: 20031001, end: 20040201
  2. NUVARING [Suspect]
     Indication: CONTRACEPTION
     Dosage: DF DAILY
     Dates: start: 20040213, end: 20040215

REACTIONS (1)
  - VAGINAL DISCHARGE [None]
